FAERS Safety Report 4399803-1 (Version None)
Quarter: 2004Q3

REPORT INFORMATION
  Report Type: 
  Country: None (occurrence: None)
  Receive Date: 20040714
  Receipt Date: 20040702
  Transmission Date: 20050211
  Serious: Yes (Other)
  Sender: FDA-Public Use
  Company Number: 2004045190

PATIENT
  Sex: Female

DRUGS (1)
  1. EPANUTIN (PHENYTOIN SODIUM) [Suspect]
     Indication: CONVULSION PROPHYLAXIS
     Dosage: ORAL
     Route: 048

REACTIONS (2)
  - OSTEOMALACIA [None]
  - STRESS FRACTURE [None]
